FAERS Safety Report 9509389 (Version 2)
Quarter: 2013Q3

REPORT INFORMATION
  Report Type: Not Available
  Country: NL (occurrence: NL)
  Receive Date: 20130909
  Receipt Date: 20130919
  Transmission Date: 20140515
  Serious: Yes (Other)
  Sender: FDA-Public Use
  Company Number: NL-NAPPMUNDI-GBR-2013-0015607

PATIENT
  Age: 46 Year
  Sex: Female

DRUGS (8)
  1. OXYCODONE HCL PR TABLET 10 MG [Suspect]
     Indication: PRODUCT USED FOR UNKNOWN INDICATION
     Dosage: 50 MG, BID
     Route: 048
     Dates: start: 20130601, end: 20130611
  2. NARDIL [Interacting]
     Indication: PRODUCT USED FOR UNKNOWN INDICATION
     Dosage: 15 MG, TID
     Dates: start: 2011
  3. TRAMADOL HCL [Concomitant]
  4. OXAZEPAM [Concomitant]
     Dosage: 10 MG, DAILY
     Dates: end: 20130608
  5. MOVICOLON [Concomitant]
     Dosage: 1 DF, DAILY
  6. OMEPRAZOLE [Concomitant]
     Dosage: 20 MG, DAILY
  7. STELARA [Concomitant]
     Dosage: 1 DF, PER 3 MONTHS
  8. DICLOFENAC [Concomitant]

REACTIONS (2)
  - Drug interaction [Recovered/Resolved]
  - Delirium [Recovered/Resolved]
